FAERS Safety Report 4409788-7 (Version None)
Quarter: 2004Q3

REPORT INFORMATION
  Report Type: 
  Country: None (occurrence: None)
  Receive Date: 20040723
  Receipt Date: 20040715
  Transmission Date: 20050211
  Serious: Yes (Other)
  Sender: FDA-Public Use
  Company Number: US-JNJFOC-20040704464

PATIENT
  Age: 74 Year
  Sex: Male

DRUGS (6)
  1. IMODIUM A-D [Suspect]
     Indication: DIARRHOEA
     Dosage: 24 MG, 1 IN 1 TOTAL
     Dates: start: 20040714, end: 20040714
  2. ZOCOR [Concomitant]
  3. SYNTHROID [Concomitant]
  4. LISINOPRIL [Concomitant]
  5. QUESTRAN (COELSTYRAMINE) [Concomitant]
  6. FLOMAX [Concomitant]

REACTIONS (8)
  - ABDOMINAL PAIN [None]
  - BLOOD POTASSIUM DECREASED [None]
  - CONSTIPATION [None]
  - DIARRHOEA [None]
  - FLATULENCE [None]
  - FOOD POISONING [None]
  - OVERDOSE [None]
  - VOMITING [None]
